FAERS Safety Report 22601233 (Version 1)
Quarter: 2023Q2

REPORT INFORMATION
  Report Type: Spontaneous
  Country: CN (occurrence: CN)
  Receive Date: 20230614
  Receipt Date: 20230614
  Transmission Date: 20230722
  Serious: Yes (Other)
  Sender: FDA-Public Use
  Company Number: None

PATIENT
  Age: 59 Year
  Sex: Female
  Weight: 62 kg

DRUGS (4)
  1. CYCLOPHOSPHAMIDE [Suspect]
     Active Substance: CYCLOPHOSPHAMIDE
     Indication: Breast cancer female
     Dosage: 1 G, QD, DILUTED WITH 0.9% SODIUM CHLORIDE INJECTION 50 ML
     Route: 041
     Dates: start: 20230509, end: 20230509
  2. SODIUM CHLORIDE [Suspect]
     Active Substance: SODIUM CHLORIDE
     Indication: Medication dilution
     Dosage: 50 ML, QD, USED TO DILUTE CYCLOPHOSPHAMIDE 1 G (STRENGTH: 0.9%, DOSAGE FORM: INJECTION)
     Route: 041
     Dates: start: 20230509, end: 20230509
  3. SODIUM CHLORIDE [Suspect]
     Active Substance: SODIUM CHLORIDE
     Dosage: 100 ML, QD, USED TO DILUTE EPIRUBICIN 140 MG (STRENGTH: 0.9%, DOSAGE FORM: INJECTION)
     Route: 041
     Dates: start: 20230509, end: 20230509
  4. EPIRUBICIN HYDROCHLORIDE [Suspect]
     Active Substance: EPIRUBICIN HYDROCHLORIDE
     Indication: Breast cancer female
     Dosage: 140 MG, QD, DILUTED WITH 0.9% SODIUM CHLORIDE INJECTION 100 ML
     Route: 041
     Dates: start: 20230509, end: 20230509

REACTIONS (1)
  - White blood cell count decreased [Recovered/Resolved]

NARRATIVE: CASE EVENT DATE: 20230521
